FAERS Safety Report 10791568 (Version 1)
Quarter: 2015Q1

REPORT INFORMATION
  Report Type: Spontaneous
  Country: US (occurrence: US)
  Receive Date: 20150213
  Receipt Date: 20150213
  Transmission Date: 20150721
  Serious: No
  Sender: FDA-Public Use
  Company Number: US-GLAXOSMITHKLINE-A1082971A

PATIENT

DRUGS (1)
  1. TARGET NICOTINE [Suspect]
     Active Substance: NICOTINE
     Dates: start: 201407

REACTIONS (3)
  - Rash pruritic [Unknown]
  - Application site rash [Recovered/Resolved]
  - Rash [Unknown]
